FAERS Safety Report 24166665 (Version 1)
Quarter: 2024Q3

REPORT INFORMATION
  Report Type: Spontaneous
  Country: RU (occurrence: RU)
  Receive Date: 20240802
  Receipt Date: 20240802
  Transmission Date: 20241016
  Serious: Yes (Death, Hospitalization)
  Sender: STRIDES
  Company Number: RU-STRIDES ARCOLAB LIMITED-2024SP009562

PATIENT
  Age: 47 Year
  Sex: Male

DRUGS (19)
  1. METHOTREXATE [Suspect]
     Active Substance: METHOTREXATE
     Indication: Psoriatic arthropathy
     Dosage: 15 MILLIGRAM, ONCE A WEEK (FOR ABOUT 1.5YEARS)
     Route: 030
  2. METHOTREXATE [Suspect]
     Active Substance: METHOTREXATE
     Indication: Acquired epidermolysis bullosa
     Dosage: 15 MILLIGRAM
     Route: 030
  3. PREDNISOLONE [Suspect]
     Active Substance: PREDNISOLONE
     Indication: Acquired epidermolysis bullosa
     Dosage: 5 MILLIGRAM, QD (12 TABLETS PER DAY)
     Route: 065
  4. PREDNISOLONE [Suspect]
     Active Substance: PREDNISOLONE
     Dosage: 60 MILLIGRAM
     Route: 065
  5. AMITRIPTYLINE [Suspect]
     Active Substance: AMITRIPTYLINE
     Indication: Acquired epidermolysis bullosa
     Dosage: 25 MILLIGRAM, AT BED TIME (1 TABLET AT NIGHT)
     Route: 065
  6. SALICYLIC ACID [Suspect]
     Active Substance: SALICYLIC ACID
     Indication: Erythrodermic psoriasis
     Dosage: UNK
     Route: 065
  7. NEOTIGASON [Suspect]
     Active Substance: ACITRETIN
     Indication: Erythrodermic psoriasis
     Dosage: 30 MILLIGRAM, QD (FOLLOWED BY A WEEK)
     Route: 065
  8. DEXAMETHASONE [Suspect]
     Active Substance: DEXAMETHASONE
     Indication: Adrenocortical steroid therapy
     Dosage: 12 MILLIGRAM (NO. 4)
     Route: 041
  9. DEXAMETHASONE [Suspect]
     Active Substance: DEXAMETHASONE
     Indication: Acquired epidermolysis bullosa
     Dosage: 8 MILLIGRAM (NO.2)
     Route: 041
  10. DEXAMETHASONE [Suspect]
     Active Substance: DEXAMETHASONE
     Dosage: 4 MILLIGRAM (NO. 5)
     Route: 041
  11. DEXAMETHASONE [Suspect]
     Active Substance: DEXAMETHASONE
     Dosage: 2 MILLIGRAM (NO.6)
     Route: 041
  12. AZITHROMYCIN [Suspect]
     Active Substance: AZITHROMYCIN
     Indication: Antibiotic therapy
     Dosage: 500 MILLIGRAM, OD (1 TABLET ONCE A DAY)
     Route: 065
  13. AZITHROMYCIN [Suspect]
     Active Substance: AZITHROMYCIN
     Indication: Acquired epidermolysis bullosa
  14. HYDROCORTISONE\NATAMYCIN\NEOMYCIN [Suspect]
     Active Substance: HYDROCORTISONE\NATAMYCIN\NEOMYCIN
     Indication: Acquired epidermolysis bullosa
     Dosage: UNK
     Route: 065
  15. DIPROSPAN [Suspect]
     Active Substance: BETAMETHASONE DIPROPIONATE\BETAMETHASONE SODIUM PHOSPHATE
     Indication: Acquired epidermolysis bullosa
     Dosage: UNK
     Route: 030
  16. FLUCONAZOLE [Suspect]
     Active Substance: FLUCONAZOLE
     Indication: Acquired epidermolysis bullosa
     Dosage: 150 MILLIGRAM PER WEEK
     Route: 065
  17. AMOXICILLIN\CLAVULANIC ACID [Suspect]
     Active Substance: AMOXICILLIN\CLAVULANIC ACID
     Indication: Antibiotic therapy
     Dosage: 1 TABLETS, TID, (1 TABLET 3 TIMES A DAY)
     Route: 065
  18. AMOXICILLIN\CLAVULANIC ACID [Suspect]
     Active Substance: AMOXICILLIN\CLAVULANIC ACID
     Indication: Acquired epidermolysis bullosa
  19. FOLIC ACID [Suspect]
     Active Substance: FOLIC ACID
     Indication: Acquired epidermolysis bullosa
     Dosage: 1 TABLETS, TID, (1 TABLET 3 TIMES A DAY)
     Route: 065

REACTIONS (10)
  - Death [Fatal]
  - Staphylococcal scalded skin syndrome [Recovered/Resolved]
  - Systemic candida [Unknown]
  - Bacteraemia [Unknown]
  - Cytomegalovirus infection [Unknown]
  - Pneumonia [Unknown]
  - Sepsis [Unknown]
  - Disease progression [Unknown]
  - Drug ineffective [Unknown]
  - Off label use [Unknown]
